FAERS Safety Report 5483303-1 (Version None)
Quarter: 2007Q4

REPORT INFORMATION
  Report Type: 
  Country: None (occurrence: None)
  Receive Date: 20071012
  Receipt Date: 20071003
  Transmission Date: 20080405
  Serious: Yes (Other)
  Sender: FDA-Public Use
  Company Number: PHEH2007US13182

PATIENT
  Age: 40 Year
  Sex: Male

DRUGS (3)
  1. TRILEPTAL [Suspect]
     Indication: EPILEPSY
     Dates: start: 20070601
  2. LAMICTAL [Suspect]
     Indication: EPILEPSY
     Dosage: 25 MG, QD
     Route: 048
     Dates: start: 20070601, end: 20070601
  3. KEPPRA [Suspect]
     Indication: EPILEPSY
     Dates: start: 20070601

REACTIONS (6)
  - ANGER [None]
  - GRAND MAL CONVULSION [None]
  - ILLITERACY [None]
  - RASH [None]
  - SPEECH DISORDER [None]
  - SUICIDAL IDEATION [None]
